FAERS Safety Report 9274531 (Version 1)
Quarter: 2013Q2

REPORT INFORMATION
  Report Type: Spontaneous
  Country: US (occurrence: US)
  Receive Date: 20130507
  Receipt Date: 20130507
  Transmission Date: 20140414
  Serious: No
  Sender: FDA-Public Use
  Company Number: US-009507513-1305USA001888

PATIENT
  Age: 51 Year
  Sex: Male

DRUGS (6)
  1. REBETOL [Suspect]
     Indication: CHRONIC HEPATITIS C
     Dosage: 1000 MG DAILY IN DIVIDED DOSES
     Route: 048
     Dates: start: 20110616, end: 20110906
  2. PEGASYS [Suspect]
     Indication: CHRONIC HEPATITIS C
     Dosage: 180 MICROGRAM, QW
     Route: 058
     Dates: start: 20110616
  3. PEGASYS [Suspect]
     Dosage: 180 MICROGRAM, QW
     Route: 058
     Dates: start: 20130325
  4. RIBASPHERE [Suspect]
     Indication: CHRONIC HEPATITIS C
     Dosage: 1000 MG, QD
     Dates: start: 20130325
  5. VICTRELIS [Suspect]
     Indication: CHRONIC HEPATITIS C
     Dosage: 2 DF, TID
     Route: 048
     Dates: start: 20130423
  6. TYLENOL [Concomitant]

REACTIONS (11)
  - Influenza like illness [Recovered/Resolved]
  - Nasal congestion [Unknown]
  - Cough [Unknown]
  - Chills [Unknown]
  - Body temperature increased [Unknown]
  - Fatigue [Unknown]
  - Dizziness [Unknown]
  - Vision blurred [Unknown]
  - Blood glucose increased [Unknown]
  - Renal impairment [Unknown]
  - Platelet count decreased [Unknown]
